FAERS Safety Report 9052884 (Version 1)
Quarter: 2013Q1

REPORT INFORMATION
  Report Type: Report from Study
  Country: DE (occurrence: DE)
  Receive Date: 20130207
  Receipt Date: 20130207
  Transmission Date: 20140127
  Serious: Yes (Hospitalization)
  Sender: FDA-Public Use
  Company Number: DE-BRISTOL-MYERS SQUIBB COMPANY-16065682

PATIENT
  Age: 77 Year
  Sex: Female
  Weight: 75 kg

DRUGS (3)
  1. ERBITUX SOLN FOR INF [Suspect]
     Indication: COLORECTAL CANCER METASTATIC
     Dosage: 400MG/M2:09MAR-09MAR11,?250MG/M2:17MAR11-04AUG11(139 DAYS)1/1 WK?RECENT INFU:4AUG11?RESTD:14SEP11
     Route: 042
     Dates: start: 20110309, end: 20110804
  2. 5-FLUOROURACIL [Suspect]
     Indication: COLON CANCER
     Route: 042
     Dates: start: 20110309, end: 20110804
  3. FOLINIC ACID [Suspect]
     Indication: COLON CANCER
     Route: 042
     Dates: start: 20110309, end: 20110804

REACTIONS (1)
  - Ileus [Recovered/Resolved]
